FAERS Safety Report 21746642 (Version 15)
Quarter: 2024Q1

REPORT INFORMATION
  Report Type: Report from Study
  Country: BR (occurrence: BR)
  Receive Date: 20221219
  Receipt Date: 20240206
  Transmission Date: 20240410
  Serious: Yes (Other)
  Sender: FDA-Public Use
  Company Number: BR-002147023-NVSC2022BR291046

PATIENT
  Sex: Female
  Weight: 61 kg

DRUGS (10)
  1. KISQALI [Suspect]
     Active Substance: RIBOCICLIB
     Indication: Metastases to breast
     Dosage: 1 DOSAGE FORM, TID
     Route: 048
     Dates: start: 2022
  2. KISQALI [Suspect]
     Active Substance: RIBOCICLIB
     Indication: Lung neoplasm malignant
     Dosage: 3 DOSAGE FORM, QD (3 TABLETS MORNING, AFTERNOON, AND NIGHT)
     Route: 065
     Dates: start: 202211
  3. KISQALI [Suspect]
     Active Substance: RIBOCICLIB
     Dosage: 3 DOSAGE FORM, QD (3 TABLETS)
     Route: 048
     Dates: start: 2022
  4. KISQALI [Suspect]
     Active Substance: RIBOCICLIB
     Dosage: 1 DOSAGE FORM, BID (2 TABLET DAILY)
     Route: 048
     Dates: start: 20230601
  5. KISQALI [Suspect]
     Active Substance: RIBOCICLIB
     Dosage: UNK
     Route: 065
  6. LOSARTAN [Suspect]
     Active Substance: LOSARTAN
     Indication: Hypertension
     Dosage: 1 DOSAGE FORM, BID
     Route: 048
     Dates: start: 2019
  7. LOSARTAN [Suspect]
     Active Substance: LOSARTAN
     Dosage: 1 DOSAGE FORM, QD (1 TABLET)
     Route: 048
     Dates: start: 2019
  8. LOSARTAN [Suspect]
     Active Substance: LOSARTAN
     Dosage: 2 DOSAGE FORM, QD
     Route: 048
     Dates: start: 2023
  9. LETROZOLE [Suspect]
     Active Substance: LETROZOLE
     Indication: Lung neoplasm malignant
     Dosage: 1 DOSAGE FORM, QD (1 TABLET)
     Route: 048
     Dates: start: 2022
  10. OMEGA 3 [Suspect]
     Active Substance: CAPSAICIN
     Indication: Osteoarthritis
     Dosage: 2 DOSAGE FORM, QD
     Route: 048
     Dates: start: 20240128

REACTIONS (15)
  - Dysentery [Recovered/Resolved]
  - Neoplasm malignant [Unknown]
  - Decreased immune responsiveness [Recovered/Resolved]
  - Decreased immune responsiveness [Recovered/Resolved]
  - Anaemia [Recovering/Resolving]
  - Back pain [Not Recovered/Not Resolved]
  - Fatigue [Not Recovered/Not Resolved]
  - Malaise [Recovering/Resolving]
  - Asthenia [Recovering/Resolving]
  - Sluggishness [Not Recovered/Not Resolved]
  - Gait disturbance [Not Recovered/Not Resolved]
  - Platelet count decreased [Recovered/Resolved]
  - Hypertension [Recovered/Resolved]
  - Inappropriate schedule of product administration [Not Recovered/Not Resolved]
  - Product use in unapproved indication [Unknown]
